FAERS Safety Report 7258049-X (Version None)
Quarter: 2011Q1

REPORT INFORMATION
  Report Type: 
  Country: None (occurrence: None)
  Receive Date: 20110129
  Receipt Date: 20100614
  Transmission Date: 20110831
  Serious: No
  Sender: FDA-Public Use
  Company Number: US-ABBOTT-10P-163-0651793-00

PATIENT
  Sex: Female
  Weight: 63.56 kg

DRUGS (10)
  1. CYTOMEL [Suspect]
     Route: 048
     Dates: start: 20090101, end: 20090101
  2. CALCIUM W/D [Concomitant]
     Indication: MINERAL SUPPLEMENTATION
     Dosage: 500/? BID
     Route: 048
  3. SULFASALAZINE [Concomitant]
     Indication: RHEUMATOID ARTHRITIS
     Dosage: 5/DAY
     Route: 048
  4. MULTIVITAMIN W/MIN [Concomitant]
     Indication: VITAMIN SUPPLEMENTATION
     Route: 048
  5. IBUPROFEN [Concomitant]
     Indication: ARTHRALGIA
     Dosage: 2 TABS W/BRKFST
     Route: 048
  6. CYTOMEL [Suspect]
     Indication: HYPOTHYROIDISM
     Route: 048
     Dates: start: 20070901, end: 20081215
  7. CYTOMEL [Suspect]
     Route: 048
     Dates: start: 20090101
  8. MINOCYCLINE HCL [Concomitant]
     Indication: RHEUMATOID ARTHRITIS
     Dosage: BID
     Route: 048
  9. HUMIRA [Suspect]
     Indication: RHEUMATOID ARTHRITIS
     Route: 058
     Dates: start: 20081101
  10. DIPHENHYDRAMINE [Concomitant]
     Indication: HYPERSENSITIVITY
     Dosage: BID
     Route: 048

REACTIONS (1)
  - FATIGUE [None]
